FAERS Safety Report 4734888-1 (Version None)
Quarter: 2005Q3

REPORT INFORMATION
  Report Type: 
  Country: None (occurrence: None)
  Receive Date: 20050804
  Receipt Date: 20050726
  Transmission Date: 20060218
  Serious: Yes (Other)
  Sender: FDA-Public Use
  Company Number: PHBS2005MX10981

PATIENT
  Age: 46 Year
  Sex: Male

DRUGS (4)
  1. DIOVAN HCT [Suspect]
     Indication: HYPERTENSION
     Dosage: 1 DF, QD
     Dates: start: 20050101, end: 20050706
  2. AMLODIPINE [Concomitant]
  3. SELOKEN [Concomitant]
  4. ASPIRIN [Concomitant]

REACTIONS (3)
  - MYOCARDIAL INFARCTION [None]
  - RASH [None]
  - URTICARIA [None]
